FAERS Safety Report 9940647 (Version 1)
Quarter: 2014Q1

REPORT INFORMATION
  Report Type: Spontaneous
  Country: US (occurrence: US)
  Receive Date: 20140303
  Receipt Date: 20140303
  Transmission Date: 20141002
  Serious: Yes (Other)
  Sender: FDA-Public Use
  Company Number: 2014SP000597

PATIENT
  Age: 32 Year
  Sex: Female

DRUGS (4)
  1. LATUDA [Suspect]
     Indication: BIPOLAR II DISORDER
     Route: 048
     Dates: start: 20140225, end: 20140225
  2. KLONOPIN [Concomitant]
     Route: 048
  3. PAXIL [Concomitant]
     Route: 048
  4. TRAZODONE [Concomitant]
     Route: 048

REACTIONS (1)
  - Swollen tongue [Unknown]
